FAERS Safety Report 23188267 (Version 3)
Quarter: 2024Q1

REPORT INFORMATION
  Report Type: Spontaneous
  Country: US (occurrence: US)
  Receive Date: 20231115
  Receipt Date: 20240207
  Transmission Date: 20240410
  Serious: No
  Sender: FDA-Public Use
  Company Number: US-PFIZER INC-PV202300186796

PATIENT
  Age: 77 Year
  Sex: Female
  Weight: 81.361 kg

DRUGS (2)
  1. IBRANCE [Suspect]
     Active Substance: PALBOCICLIB
     Indication: Breast cancer metastatic
     Dosage: 1 TABLET DAILY FOR 21 DAYS, 7 DAYS OFF, EVERY 28 DAYS CYCLE
     Dates: start: 20230206
  2. FEMARA [Concomitant]
     Active Substance: LETROZOLE
     Indication: Breast cancer metastatic
     Dosage: UNK
     Dates: start: 20230206

REACTIONS (4)
  - Hot flush [Unknown]
  - Transaminases increased [Unknown]
  - Breast mass [Unknown]
  - Infection [Unknown]
